FAERS Safety Report 14301650 (Version 7)
Quarter: 2018Q2

REPORT INFORMATION
  Report Type: Report from Study
  Country: DE (occurrence: DE)
  Receive Date: 20171219
  Receipt Date: 20180423
  Transmission Date: 20180711
  Serious: Yes (Other)
  Sender: FDA-Public Use
  Company Number: DE-PFIZER INC-2017532842

PATIENT
  Sex: Male

DRUGS (6)
  1. MELPHALAN. [Suspect]
     Active Substance: MELPHALAN
     Indication: RHABDOID TUMOUR OF THE KIDNEY
  2. MELPHALAN. [Suspect]
     Active Substance: MELPHALAN
     Indication: NEPHROBLASTOMA
     Dosage: CONDITIONING REGIMEN, HIGH-DOSE
  3. CARBOPLATIN. [Suspect]
     Active Substance: CARBOPLATIN
     Indication: NEPHROBLASTOMA
     Dosage: CONDITIONING REGIMEN, HIGH-DOSE
  4. ETOPOSIDE. [Suspect]
     Active Substance: ETOPOSIDE
     Indication: RHABDOID TUMOUR OF THE KIDNEY
  5. CARBOPLATIN. [Suspect]
     Active Substance: CARBOPLATIN
     Indication: RHABDOID TUMOUR OF THE KIDNEY
  6. ETOPOSIDE. [Suspect]
     Active Substance: ETOPOSIDE
     Indication: NEPHROBLASTOMA
     Dosage: CONDITIONING REGIMEN, HIGH-DOSE

REACTIONS (2)
  - Acute kidney injury [Unknown]
  - Venoocclusive disease [Unknown]
